FAERS Safety Report 6241504-9 (Version None)
Quarter: 2009Q2

REPORT INFORMATION
  Report Type: 
  Country: None (occurrence: None)
  Receive Date: 20090623
  Receipt Date: 20030923
  Transmission Date: 20091009
  Serious: Yes (Hospitalization)
  Sender: FDA-Public Use
  Company Number: DE-ROCHE-347435

PATIENT
  Sex: Female

DRUGS (54)
  1. MYCOPHENOLATE MOFETIL [Suspect]
     Route: 048
     Dates: start: 20030828
  2. MYCOPHENOLATE MOFETIL [Suspect]
     Route: 048
     Dates: start: 20030829
  3. MYCOPHENOLATE MOFETIL [Suspect]
     Route: 048
     Dates: start: 20031104, end: 20031107
  4. MYCOPHENOLATE MOFETIL [Suspect]
     Route: 048
     Dates: start: 20031121
  5. MYCOPHENOLATE MOFETIL [Suspect]
     Route: 048
     Dates: start: 20031127, end: 20040121
  6. MYCOPHENOLATE MOFETIL [Suspect]
     Route: 048
     Dates: start: 20040202, end: 20051214
  7. MYCOPHENOLATE MOFETIL [Suspect]
     Route: 048
     Dates: start: 20060307
  8. DACLIZUMAB [Suspect]
     Dosage: BASELINE VISIT
     Route: 042
     Dates: start: 20030828
  9. DACLIZUMAB [Suspect]
     Dosage: FREQUENCY PER PROTOCOL
     Route: 042
     Dates: start: 20030911, end: 20031023
  10. TACROLIMUS [Suspect]
     Dosage: DRUG NAME: PROGRAF
     Route: 048
     Dates: start: 20030828, end: 20030828
  11. TACROLIMUS [Suspect]
     Route: 048
     Dates: start: 20030829, end: 20030829
  12. TACROLIMUS [Suspect]
     Route: 048
     Dates: start: 20030830, end: 20030830
  13. TACROLIMUS [Suspect]
     Route: 048
     Dates: start: 20030831, end: 20030902
  14. TACROLIMUS [Suspect]
     Route: 048
     Dates: start: 20030903, end: 20030904
  15. TACROLIMUS [Suspect]
     Route: 048
     Dates: start: 20030905, end: 20030905
  16. TACROLIMUS [Suspect]
     Route: 048
     Dates: start: 20030906, end: 20030907
  17. TACROLIMUS [Suspect]
     Route: 048
     Dates: start: 20030908, end: 20030909
  18. TACROLIMUS [Suspect]
     Route: 048
     Dates: start: 20030910, end: 20030910
  19. TACROLIMUS [Suspect]
     Route: 048
     Dates: start: 20030911, end: 20031106
  20. TACROLIMUS [Suspect]
     Route: 048
     Dates: start: 20031107, end: 20031117
  21. TACROLIMUS [Suspect]
     Route: 048
     Dates: start: 20031118, end: 20040120
  22. TACROLIMUS [Suspect]
     Route: 048
     Dates: start: 20040121, end: 20040121
  23. TACROLIMUS [Suspect]
     Route: 048
     Dates: start: 20040122, end: 20040503
  24. TACROLIMUS [Suspect]
     Route: 048
     Dates: start: 20040504, end: 20050601
  25. TACROLIMUS [Suspect]
     Route: 048
     Dates: start: 20050602, end: 20060306
  26. TACROLIMUS [Suspect]
     Route: 048
     Dates: start: 20060307, end: 20060830
  27. TACROLIMUS [Suspect]
     Route: 048
     Dates: start: 20060831
  28. DECORTIN H [Suspect]
     Route: 048
     Dates: start: 20030830, end: 20040121
  29. DECORTIN H [Suspect]
     Route: 048
     Dates: start: 20040128
  30. SOLU-DECORTIN [Suspect]
     Route: 042
     Dates: start: 20030828, end: 20030830
  31. HYDROCORTISON [Suspect]
     Route: 042
     Dates: start: 20040121, end: 20040128
  32. PROPALLYLONAL [Concomitant]
     Route: 048
     Dates: start: 20030829
  33. COTRIM [Concomitant]
     Route: 048
     Dates: start: 20030901, end: 20031104
  34. DILATREND [Concomitant]
     Route: 048
     Dates: start: 20030828
  35. NORVASC [Concomitant]
     Route: 048
     Dates: start: 20030830
  36. VALCYTE [Concomitant]
     Route: 048
     Dates: start: 20030902, end: 20031104
  37. ASPIRIN [Concomitant]
     Route: 048
     Dates: start: 20030905, end: 20030919
  38. SORTIS [Concomitant]
     Route: 048
     Dates: start: 20031009
  39. SORTIS [Concomitant]
     Route: 048
     Dates: start: 20040211
  40. AMPHOTERICIN B [Concomitant]
     Route: 060
     Dates: start: 20030829, end: 20031104
  41. CYMEVAN [Concomitant]
     Route: 042
     Dates: start: 20030828, end: 20030830
  42. ROCEPHIN [Concomitant]
     Route: 042
     Dates: start: 20030828, end: 20030829
  43. ROCEPHIN [Concomitant]
     Route: 042
     Dates: start: 20040121, end: 20040129
  44. BAYOTENSIN [Concomitant]
     Dosage: DRUG NAME: BAYOTENSIN AKUT
     Route: 042
     Dates: start: 20030829, end: 20030830
  45. CLINDA-SAAR (CLINDAMYCIN HYDROCHLORIDE) [Concomitant]
     Dosage: DRUG NAME: CLINDA-SAAR
     Route: 042
     Dates: start: 20030921, end: 20030921
  46. CLINDA-SAAR [Concomitant]
     Route: 048
     Dates: start: 20030922, end: 20031007
  47. AMPICILLIN [Concomitant]
     Dosage: FREQUENCY: 1 DAY
     Route: 048
     Dates: start: 20040115, end: 20040120
  48. CEFUROXIME [Concomitant]
     Route: 048
     Dates: start: 20031016, end: 20031027
  49. CIPROBAY [Concomitant]
     Route: 042
     Dates: start: 20040120, end: 20040120
  50. CIPROBAY [Concomitant]
     Route: 048
     Dates: start: 20040121, end: 20040123
  51. CIPROBAY [Concomitant]
     Route: 048
     Dates: start: 20040226, end: 20040304
  52. CIPROBAY [Concomitant]
     Route: 048
     Dates: start: 20050831, end: 20050905
  53. METRONIDAZOLE HCL [Concomitant]
     Route: 048
     Dates: start: 20040217, end: 20040505
  54. VANCOMYCIN [Concomitant]
     Route: 048
     Dates: start: 20040419, end: 20040505

REACTIONS (4)
  - CARPAL TUNNEL SYNDROME [None]
  - HAEMATOMA [None]
  - NEPHRITIS [None]
  - URINARY TRACT INFECTION [None]
